FAERS Safety Report 13114572 (Version 3)
Quarter: 2017Q1

REPORT INFORMATION
  Report Type: Report from Study
  Country: JP (occurrence: JP)
  Receive Date: 20170113
  Receipt Date: 20170228
  Transmission Date: 20170428
  Serious: Yes (Death, Hospitalization, Other)
  Sender: FDA-Public Use
  Company Number: PHJP2016JP001908

PATIENT
  Age: 62 Year
  Sex: Female

DRUGS (30)
  1. CERTICAN [Suspect]
     Active Substance: EVEROLIMUS
     Indication: HEART TRANSPLANT
     Dosage: 1 MG, QD
     Route: 048
     Dates: start: 20101210, end: 20110105
  2. CERTICAN [Suspect]
     Active Substance: EVEROLIMUS
     Dosage: 1.5 MG, QD
     Route: 048
     Dates: start: 20110106
  3. PREDNISOLONE. [Concomitant]
     Active Substance: PREDNISOLONE
     Dosage: 2 MG, UNK
     Route: 048
     Dates: start: 20121211, end: 20160506
  4. PROGRAF [Suspect]
     Active Substance: TACROLIMUS\TACROLIMUS ANHYDROUS
     Dosage: 1.4 MG, UNK
     Route: 048
     Dates: start: 20151223, end: 20160307
  5. PARIET [Concomitant]
     Active Substance: RABEPRAZOLE SODIUM
     Indication: PROPHYLAXIS
     Dosage: 10 MG, UNK
     Route: 048
     Dates: start: 20141213
  6. CERTICAN [Suspect]
     Active Substance: EVEROLIMUS
     Dosage: 1.5 MG, UNK
     Route: 048
     Dates: start: 20151223
  7. PROGRAF [Suspect]
     Active Substance: TACROLIMUS\TACROLIMUS ANHYDROUS
     Dosage: 2 MG, UNK
     Route: 048
     Dates: start: 20151214, end: 20151222
  8. MYCOPHENOLATE [Concomitant]
     Active Substance: MYCOPHENOLIC ACID
     Indication: PROPHYLAXIS AGAINST TRANSPLANT REJECTION
     Dosage: 750 MG, UNK
     Route: 048
     Dates: start: 201012
  9. HERBESSER [Concomitant]
     Active Substance: DILTIAZEM HYDROCHLORIDE
     Dosage: 100 MG, UNK
     Route: 048
     Dates: start: 20141213, end: 20160306
  10. PROGRAF [Suspect]
     Active Substance: TACROLIMUS\TACROLIMUS ANHYDROUS
     Dosage: 1.4 MG, UNK
     Route: 048
     Dates: start: 20101212
  11. PROGRAF [Suspect]
     Active Substance: TACROLIMUS\TACROLIMUS ANHYDROUS
     Dosage: 2 MG, UNK
     Route: 048
     Dates: start: 20141213, end: 20150204
  12. PROGRAF [Suspect]
     Active Substance: TACROLIMUS\TACROLIMUS ANHYDROUS
     Dosage: 1.2 MG, UNK
     Route: 048
     Dates: start: 20160308
  13. PREDNISOLONE. [Concomitant]
     Active Substance: PREDNISOLONE
     Indication: PROPHYLAXIS AGAINST TRANSPLANT REJECTION
     Dosage: 6 MG, UNK
     Route: 048
     Dates: start: 201012, end: 20101219
  14. PREDNISOLONE. [Concomitant]
     Active Substance: PREDNISOLONE
     Dosage: 4 MG, UNK
     Route: 048
     Dates: start: 20110217
  15. CRESTOR [Concomitant]
     Active Substance: ROSUVASTATIN CALCIUM
     Indication: PROPHYLAXIS
     Dosage: 7.5 MG, UNK
     Route: 048
     Dates: start: 201012
  16. HERBESSER [Concomitant]
     Active Substance: DILTIAZEM HYDROCHLORIDE
     Indication: PROPHYLAXIS
     Dosage: 100 MG, UNK
     Route: 048
     Dates: start: 201012
  17. TRAZENTA [Concomitant]
     Active Substance: LINAGLIPTIN
     Indication: PROPHYLAXIS
     Dosage: 5 MG, UNK
     Route: 048
     Dates: start: 20160511
  18. PROGRAF [Suspect]
     Active Substance: TACROLIMUS\TACROLIMUS ANHYDROUS
     Indication: HEART TRANSPLANT
     Dosage: 2 MG, UNK
     Route: 048
     Dates: start: 201012
  19. MYCOPHENOLATE [Concomitant]
     Active Substance: MYCOPHENOLIC ACID
     Dosage: 250 MG, UNK
     Route: 048
     Dates: start: 20101212
  20. BAKTAR [Concomitant]
     Active Substance: SULFAMETHOXAZOLE\TRIMETHOPRIM
     Indication: HYPERLIPIDAEMIA
     Dosage: 1 DF, UNK
     Route: 048
     Dates: start: 20121211, end: 20131211
  21. HUMULIN R [Concomitant]
     Active Substance: INSULIN HUMAN
     Indication: PROPHYLAXIS
  22. LANTUS [Concomitant]
     Active Substance: INSULIN GLARGINE
     Indication: PROPHYLAXIS
  23. CERTICAN [Suspect]
     Active Substance: EVEROLIMUS
     Dosage: 1 MG, QD
     Route: 048
     Dates: start: 20141213, end: 20151222
  24. PREDNISOLONE. [Concomitant]
     Active Substance: PREDNISOLONE
     Dosage: 5 MG, UNK
     Route: 048
     Dates: start: 20101220, end: 20110216
  25. RENIVACE [Concomitant]
     Active Substance: ENALAPRIL
     Indication: PROPHYLAXIS
     Dosage: 2.5 MG, UNK
     Route: 048
     Dates: start: 201012
  26. HUMULIN R [Concomitant]
     Active Substance: INSULIN HUMAN
     Indication: HYPERLIPIDAEMIA
     Dosage: 2-16 IU, UNK
     Route: 058
     Dates: start: 20160510, end: 20160511
  27. PROGRAF [Suspect]
     Active Substance: TACROLIMUS\TACROLIMUS ANHYDROUS
     Dosage: 2.2 MG, UNK
     Route: 048
     Dates: start: 20150205, end: 20151213
  28. CRESTOR [Concomitant]
     Active Substance: ROSUVASTATIN CALCIUM
     Dosage: 2.5 MG, UNK
     Route: 048
     Dates: start: 20141213
  29. DECADRON [Concomitant]
     Active Substance: DEXAMETHASONE
     Indication: HEART TRANSPLANT REJECTION
     Dosage: 4 MG, UNK
     Route: 048
     Dates: start: 20160507
  30. LANTUS [Concomitant]
     Active Substance: INSULIN GLARGINE
     Indication: HYPERLIPIDAEMIA
     Dosage: 6-10 IU, UNK
     Route: 058
     Dates: start: 20160510

REACTIONS (5)
  - Bladder cancer [Fatal]
  - Pyrexia [Fatal]
  - Metastases to peritoneum [Unknown]
  - Haematuria [Fatal]
  - Cancer pain [Fatal]

NARRATIVE: CASE EVENT DATE: 201502
